FAERS Safety Report 9048390 (Version 1)
Quarter: 2013Q1

REPORT INFORMATION
  Report Type: Spontaneous
  Country: US (occurrence: None)
  Receive Date: 20130130
  Receipt Date: 20130130
  Transmission Date: 20140127
  Serious: No
  Sender: FDA-Public Use
  Company Number: None

PATIENT
  Age: 69 Year
  Sex: Male
  Weight: 76.8 kg

DRUGS (1)
  1. CETUXIMAB [Suspect]
     Indication: SKIN CANCER
     Route: 042
     Dates: start: 20130111, end: 20130111

REACTIONS (5)
  - Urticaria [None]
  - Pruritus [None]
  - Nausea [None]
  - Vomiting [None]
  - Flushing [None]
